FAERS Safety Report 25285586 (Version 2)
Quarter: 2025Q2

REPORT INFORMATION
  Report Type: Spontaneous
  Country: US (occurrence: US)
  Receive Date: 20250509
  Receipt Date: 20250609
  Transmission Date: 20250717
  Serious: No
  Sender: BIOGEN
  Company Number: US-BIOGEN-2025BI01310240

PATIENT
  Sex: Female

DRUGS (1)
  1. TYSABRI [Suspect]
     Active Substance: NATALIZUMAB
     Indication: Multiple sclerosis
     Route: 050
     Dates: start: 20100125

REACTIONS (2)
  - Prescribed underdose [Not Recovered/Not Resolved]
  - Ankle fracture [Unknown]
